FAERS Safety Report 7655665-8 (Version None)
Quarter: 2011Q3

REPORT INFORMATION
  Report Type: 
  Country: None (occurrence: None)
  Receive Date: 20110804
  Receipt Date: 20110729
  Transmission Date: 20111222
  Serious: Yes (Disabling)
  Sender: FDA-Public Use
  Company Number: GB-PFIZER INC-2011177264

PATIENT
  Age: 86 Year
  Sex: Male

DRUGS (1)
  1. TOLTERODINE TARTRATE [Suspect]

REACTIONS (1)
  - HYPERSENSITIVITY [None]
